FAERS Safety Report 9228115 (Version 2)
Quarter: 2013Q2

REPORT INFORMATION
  Report Type: Report from Study
  Country: US (occurrence: US)
  Receive Date: 20130412
  Receipt Date: 20130521
  Transmission Date: 20140414
  Serious: Yes (Death, Other)
  Sender: FDA-Public Use
  Company Number: US-ROCHE-1210945

PATIENT
  Sex: 0

DRUGS (4)
  1. ALTEPLASE [Suspect]
     Indication: ISCHAEMIC STROKE
     Route: 040
  2. ALTEPLASE [Suspect]
     Route: 013
  3. UROKINASE [Suspect]
     Indication: ISCHAEMIC STROKE
     Dosage: 50000 TO 100000 U
     Route: 013
  4. RETEPLASE [Suspect]
     Indication: ISCHAEMIC STROKE
     Dosage: UP TO 6 U INFUSED BY SLOW HAND OVER 5 TO 10 MIN (1-U ALIQUOTS DILUTED IN 3 ML)
     Route: 013

REACTIONS (9)
  - Death [Fatal]
  - Brain herniation [Fatal]
  - Intracranial haematoma [Fatal]
  - Brain oedema [Fatal]
  - No therapeutic response [Unknown]
  - Haemorrhage intracranial [Unknown]
  - Haemorrhagic infarction [Unknown]
  - Haematuria [Unknown]
  - Haematoma [Unknown]
